FAERS Safety Report 18436762 (Version 1)
Quarter: 2020Q4

REPORT INFORMATION
  Report Type: Report from Study
  Country: FR (occurrence: FR)
  Receive Date: 20201028
  Receipt Date: 20201028
  Transmission Date: 20210114
  Serious: Yes (Hospitalization)
  Sender: FDA-Public Use
  Company Number: FR-TAKEDA-FR202020768

PATIENT

DRUGS (8)
  1. TEDUGLUTIDE [Suspect]
     Active Substance: TEDUGLUTIDE
     Indication: SHORT-BOWEL SYNDROME
     Dosage: 3.0 MILLIGRAM (TED DAILY DOSES 0.0500 MG/KG, TED DOSES PER WEEK 7)
     Route: 065
     Dates: start: 20180625, end: 20200520
  2. NOVOMIX [Concomitant]
     Active Substance: INSULIN ASPART
     Indication: DIABETES MELLITUS
  3. PANTOPRAZOLE [Concomitant]
     Active Substance: PANTOPRAZOLE
     Indication: PROPHYLAXIS
  4. TEDUGLUTIDE [Suspect]
     Active Substance: TEDUGLUTIDE
     Indication: SHORT-BOWEL SYNDROME
     Dosage: 3.0 MILLIGRAM (TED DAILY DOSES 0.0500 MG/KG, TED DOSES PER WEEK 7)
     Route: 065
     Dates: start: 20180625, end: 20200520
  5. LOPERAMIDE CHLORHYDRATE [Concomitant]
     Active Substance: LOPERAMIDE HYDROCHLORIDE
     Indication: PROPHYLAXIS
  6. ASPEGIC [ACETYLSALICYLIC ACID] [Concomitant]
     Active Substance: ASPIRIN
     Indication: PROPHYLAXIS
  7. TEDUGLUTIDE [Suspect]
     Active Substance: TEDUGLUTIDE
     Indication: SHORT-BOWEL SYNDROME
     Dosage: 3.0 MILLIGRAM (TED DAILY DOSES 0.0500 MG/KG, TED DOSES PER WEEK 7)
     Route: 065
     Dates: start: 20180625, end: 20200520
  8. TEDUGLUTIDE [Suspect]
     Active Substance: TEDUGLUTIDE
     Indication: SHORT-BOWEL SYNDROME
     Dosage: 3.0 MILLIGRAM (TED DAILY DOSES 0.0500 MG/KG, TED DOSES PER WEEK 7)
     Route: 065
     Dates: start: 20180625, end: 20200520

REACTIONS (2)
  - Neoplasm malignant [Recovered/Resolved]
  - Dehydration [Recovered/Resolved]

NARRATIVE: CASE EVENT DATE: 20200511
